FAERS Safety Report 7745155-6 (Version None)
Quarter: 2011Q3

REPORT INFORMATION
  Report Type: 
  Country: None (occurrence: None)
  Receive Date: 20110907
  Receipt Date: 20110822
  Transmission Date: 20111222
  Serious: Yes (Other)
  Sender: FDA-Public Use
  Company Number: 2011P1008452

PATIENT
  Age: 49 Year
  Sex: Female
  Weight: 54.4316 kg

DRUGS (1)
  1. FLUOROURACIL [Suspect]
     Indication: ACTINIC KERATOSIS
     Dosage: BID, TOP
     Route: 061
     Dates: start: 20110812, end: 20110820

REACTIONS (6)
  - HYPOAESTHESIA [None]
  - SKIN NECROSIS [None]
  - HEADACHE [None]
  - DRUG INEFFECTIVE [None]
  - ERYTHEMA [None]
  - CHEMICAL INJURY [None]
